FAERS Safety Report 19358118 (Version 1)
Quarter: 2021Q2

REPORT INFORMATION
  Report Type: Spontaneous
  Country: IN (occurrence: IN)
  Receive Date: 20210601
  Receipt Date: 20210601
  Transmission Date: 20210717
  Serious: Yes (Hospitalization, Other)
  Sender: FDA-Public Use
  Company Number: IN-MSNLABS-2021MSNLIT00146

PATIENT

DRUGS (6)
  1. SOFRAMYCIN [FRAMYCETIN SULFATE] [Interacting]
     Active Substance: FRAMYCETIN SULFATE
     Indication: TOXIC EPIDERMAL NECROLYSIS
     Dosage: DRESSINGS
     Route: 065
  2. METHYLPREDNISOLONE. [Interacting]
     Active Substance: METHYLPREDNISOLONE
     Indication: PRODUCT USED FOR UNKNOWN INDICATION
     Route: 065
  3. FENTANYL. [Interacting]
     Active Substance: FENTANYL
     Indication: TACHYCARDIA
     Route: 065
  4. SILVER NITRATE. [Interacting]
     Active Substance: SILVER NITRATE
     Indication: TOXIC EPIDERMAL NECROLYSIS
     Dosage: WET DRESSING
     Route: 065
  5. ALBENDAZOLE TABLETS 500 MG [Suspect]
     Active Substance: ALBENDAZOLE
     Indication: PRODUCT USED FOR UNKNOWN INDICATION
     Route: 048
  6. ALBUMIN [Interacting]
     Active Substance: ALBUMIN HUMAN
     Indication: PRODUCT USED FOR UNKNOWN INDICATION
     Route: 065

REACTIONS (2)
  - Tachycardia [Unknown]
  - Toxic epidermal necrolysis [Recovering/Resolving]
